FAERS Safety Report 5129991-0 (Version None)
Quarter: 2006Q4

REPORT INFORMATION
  Report Type: 
  Country: None (occurrence: None)
  Receive Date: 20061013
  Receipt Date: 20060929
  Transmission Date: 20070319
  Serious: Yes (Life-Threatening)
  Sender: FDA-Public Use
  Company Number: 2006RR-03969

PATIENT
  Age: 70 Year
  Sex: Female

DRUGS (8)
  1. AMOXICILLIN [Suspect]
     Indication: ENDOSCOPY GASTROINTESTINAL
     Dosage: 1 G, INTRAVENOUS
     Route: 042
     Dates: start: 20060721, end: 20060721
  2. GENTAMICIN [Suspect]
     Indication: ENDOSCOPY GASTROINTESTINAL
     Dosage: 120 MG, INTRAVENOUS
     Route: 042
     Dates: start: 20060721, end: 20060721
  3. BISOPROLOL FUMARATE [Concomitant]
  4. CANDESARTAN [Concomitant]
  5. ISOSORBIDE MONONITRATE [Concomitant]
  6. FUROSEMIDE [Concomitant]
  7. ACETAMINOPHEN [Concomitant]
  8. WARFARIN SODIUM [Concomitant]

REACTIONS (3)
  - ANAPHYLACTIC REACTION [None]
  - HYPOTENSION [None]
  - PO2 DECREASED [None]
